FAERS Safety Report 25381101 (Version 1)
Quarter: 2025Q2

REPORT INFORMATION
  Report Type: Report from Study
  Country: US (occurrence: US)
  Receive Date: 20250530
  Receipt Date: 20250530
  Transmission Date: 20250717
  Serious: Yes (Hospitalization)
  Sender: MALLINCKRODT
  Company Number: US-MALLINCKRODT-MNK202503033

PATIENT
  Age: 5 Month
  Sex: Male

DRUGS (4)
  1. CORTICOTROPIN [Suspect]
     Active Substance: CORTICOTROPIN
     Indication: Product used for unknown indication
     Route: 030
  2. CORTICOTROPIN [Suspect]
     Active Substance: CORTICOTROPIN
     Route: 030
  3. CORTICOTROPIN [Suspect]
     Active Substance: CORTICOTROPIN
     Route: 030
  4. CORTICOTROPIN [Suspect]
     Active Substance: CORTICOTROPIN
     Route: 030

REACTIONS (1)
  - Hospitalisation [Not Recovered/Not Resolved]
